FAERS Safety Report 5484259-8 (Version None)
Quarter: 2007Q4

REPORT INFORMATION
  Report Type: 
  Country: None (occurrence: None)
  Receive Date: 20071010
  Receipt Date: 20070927
  Transmission Date: 20080405
  Serious: Yes (Death, Hospitalization)
  Sender: FDA-Public Use
  Company Number: 2007US002375

PATIENT
  Age: 33 Year
  Sex: Male

DRUGS (17)
  1. PROGRAF [Suspect]
     Indication: RENAL TRANSPLANT
     Dosage: 6 MG, BID, ORAL; 1.5 MG, BID, ORAL
     Route: 048
     Dates: start: 20050120
  2. MYCOPHENOLATE MOFETIL [Suspect]
     Indication: RENAL TRANSPLANT
     Dosage: 1000 MG, BID, ORAL; 500 MG, BID, ORAL
     Route: 048
     Dates: start: 20050120
  3. PREDNISONE TAB [Suspect]
     Indication: RENAL TRANSPLANT
     Dosage: 25 MG, BID, ORAL; 10 MG, BID, ORAL
     Route: 048
     Dates: start: 20050120
  4. ACIPHEX [Concomitant]
  5. ALLEGRA (FEXOFENADINE HYDROCHLORIDE) [Concomitant]
  6. BACTRIM (TRIMETHOPRIM) [Concomitant]
  7. COLACE (DOCUSATE SODIUM) [Concomitant]
  8. LANTUS [Concomitant]
  9. INSULIN (INSULIN HUMAN) [Concomitant]
  10. SYNTHROID [Concomitant]
  11. VALCYTE [Concomitant]
  12. NYSTATIN [Concomitant]
  13. TOPROL-XL [Concomitant]
  14. PROCARDIA [Concomitant]
  15. COZAAR [Concomitant]
  16. LIPITOR [Concomitant]
  17. LEVOTHYROXIEN (LEVOTHYROXINE) [Concomitant]

REACTIONS (4)
  - ABDOMINAL PAIN [None]
  - DIARRHOEA [None]
  - PULMONARY EMBOLISM [None]
  - VOMITING [None]
